FAERS Safety Report 8400315-6 (Version None)
Quarter: 2012Q2

REPORT INFORMATION
  Report Type: 
  Country: None (occurrence: None)
  Receive Date: 20120531
  Receipt Date: 20120522
  Transmission Date: 20120825
  Serious: Yes (Death, Hospitalization)
  Sender: FDA-Public Use
  Company Number: GR-BAXTER-2012BAX004125

PATIENT
  Age: 65 Year
  Sex: Female
  Weight: 75 kg

DRUGS (7)
  1. LINEZOLID [Concomitant]
     Route: 042
     Dates: start: 20120225, end: 20120308
  2. HUMAN ALBUMIN/BAXTER 200G/L SOLUTION FOR INFUSION [Suspect]
     Route: 042
     Dates: start: 20120217, end: 20120219
  3. COLISTIN [Concomitant]
     Dosage: 3.10^6
     Route: 042
     Dates: start: 20120212, end: 20120227
  4. HUMAN ALBUMIN/BAXTER 200G/L SOLUTION FOR INFUSION [Suspect]
     Route: 042
  5. HUMAN ALBUMIN/BAXTER 200G/L SOLUTION FOR INFUSION [Suspect]
     Route: 042
     Dates: start: 20120303, end: 20120306
  6. HUMAN ALBUMIN/BAXTER 200G/L SOLUTION FOR INFUSION [Suspect]
     Route: 042
  7. HUMAN ALBUMIN/BAXTER 200G/L SOLUTION FOR INFUSION [Suspect]
     Route: 042

REACTIONS (3)
  - RASH GENERALISED [None]
  - RASH [None]
  - RESPIRATORY FAILURE [None]
